FAERS Safety Report 8491522-5 (Version None)
Quarter: 2012Q3

REPORT INFORMATION
  Report Type: 
  Country: None (occurrence: None)
  Receive Date: 20120706
  Receipt Date: 20120627
  Transmission Date: 20120928
  Serious: Yes (Hospitalization)
  Sender: FDA-Public Use
  Company Number: FR-ASTRAZENECA-2012SE43937

PATIENT
  Age: 27244 Day
  Sex: Female

DRUGS (9)
  1. ECONAZOLE SANDOZ [Suspect]
     Dates: end: 20120425
  2. AMIKACIN [Suspect]
     Dates: start: 20120422, end: 20120422
  3. CIPROFLOXACIN HCL [Suspect]
     Dates: start: 20120402, end: 20120425
  4. MINI-SINTROM [Suspect]
     Indication: ARRHYTHMIA
     Dates: start: 20120403, end: 20120425
  5. AMOXICILLIN TRIHYDRATE [Suspect]
     Dates: start: 20120402, end: 20120422
  6. NEXIUM [Suspect]
     Route: 048
     Dates: start: 20120402, end: 20120425
  7. AUGMENTIN '125' [Suspect]
     Indication: LUNG DISORDER
     Dates: start: 20120326, end: 20120401
  8. TAZOBACTAM [Suspect]
     Indication: MEDIASTINITIS
     Dates: start: 20120329, end: 20120402
  9. AMIKACIN [Suspect]
     Indication: MEDIASTINITIS
     Dates: start: 20120329, end: 20120329

REACTIONS (4)
  - ATRIAL FIBRILLATION [None]
  - RASH [None]
  - OEDEMA PERIPHERAL [None]
  - ACUTE GENERALISED EXANTHEMATOUS PUSTULOSIS [None]
